FAERS Safety Report 14027479 (Version 1)
Quarter: 2017Q3

REPORT INFORMATION
  Report Type: Report from Study
  Country: US (occurrence: US)
  Receive Date: 20170929
  Receipt Date: 20170929
  Transmission Date: 20171128
  Serious: Yes (Hospitalization)
  Sender: FDA-Public Use
  Company Number: US-TESARO, INC-US-2017TSO02781

PATIENT

DRUGS (1)
  1. ZEJULA [Suspect]
     Active Substance: NIRAPARIB
     Indication: OVARIAN CANCER
     Dosage: 300 MG, QD
     Route: 048
     Dates: start: 20170824, end: 2017

REACTIONS (10)
  - Hospitalisation [Not Recovered/Not Resolved]
  - Fatigue [Recovered/Resolved]
  - Insomnia [Not Recovered/Not Resolved]
  - Thrombocytopenia [Not Recovered/Not Resolved]
  - White blood cell count decreased [Not Recovered/Not Resolved]
  - Anaemia [Not Recovered/Not Resolved]
  - Arthralgia [Recovered/Resolved]
  - Feeling abnormal [Recovered/Resolved]
  - Neuropathy peripheral [Not Recovered/Not Resolved]
  - Neutropenia [Not Recovered/Not Resolved]

NARRATIVE: CASE EVENT DATE: 2017
